FAERS Safety Report 5305561-6 (Version None)
Quarter: 2007Q2

REPORT INFORMATION
  Report Type: 
  Country: None (occurrence: None)
  Receive Date: 20070424
  Receipt Date: 20070412
  Transmission Date: 20071010
  Serious: Yes (Death, Other)
  Sender: FDA-Public Use
  Company Number: GB-JNJFOC-20070101585

PATIENT
  Sex: Female
  Weight: 53 kg

DRUGS (7)
  1. REMICADE [Suspect]
     Indication: RHEUMATOID ARTHRITIS
     Route: 042
  2. METHOTREXATE [Concomitant]
     Route: 065
  3. PREDNISOLONE [Concomitant]
     Route: 065
  4. ALENDRONATE SODIUM [Concomitant]
     Route: 065
  5. FOLIC ACID [Concomitant]
     Route: 065
  6. MELOXICAM [Concomitant]
     Route: 065
  7. PARACETAMOL [Concomitant]
     Route: 065

REACTIONS (1)
  - NEOPLASM MALIGNANT [None]
